FAERS Safety Report 6496644-6 (Version None)
Quarter: 2009Q4

REPORT INFORMATION
  Report Type: 
  Country: None (occurrence: None)
  Receive Date: 20091210
  Receipt Date: 20091120
  Transmission Date: 20100525
  Serious: Yes (Death)
  Sender: FDA-Public Use
  Company Number: 8054905

PATIENT
  Age: 79 Year
  Sex: Male

DRUGS (4)
  1. PREDNISOLONE (PREDNISOLONE) [Suspect]
     Dosage: (100 MG DAY 1 AND 2)
  2. RITUXIMAB (RITUXIMAB) [Suspect]
     Dosage: 375 MG/M2 DAY 1
  3. CYCLOPHOSPHAMIDE [Suspect]
     Dosage: 400 MG/M2 DAY 2
  4. VINCRISTINE [Suspect]
     Dosage: 1 MG DAY 2

REACTIONS (6)
  - ANGIOCENTRIC LYMPHOMA [None]
  - BRONCHOALVEOLAR LAVAGE ABNORMAL [None]
  - IMMUNOSUPPRESSION [None]
  - MALIGNANT NEOPLASM PROGRESSION [None]
  - PNEUMONIA [None]
  - PSEUDOMONAS INFECTION [None]
